FAERS Safety Report 7742983-8 (Version None)
Quarter: 2011Q3

REPORT INFORMATION
  Report Type: 
  Country: None (occurrence: None)
  Receive Date: 20110912
  Receipt Date: 20110902
  Transmission Date: 20111222
  Serious: Yes (Other)
  Sender: FDA-Public Use
  Company Number: GB-JNJFOC-20110100919

PATIENT
  Age: 46 Year
  Sex: Male

DRUGS (5)
  1. VITAMINS NOS [Concomitant]
  2. ACETAMINOPHEN [Suspect]
  3. ACETAMINOPHEN [Suspect]
     Indication: PROCEDURAL PAIN
  4. IBUPROFEN [Suspect]
     Indication: PROCEDURAL PAIN
  5. HERBAL PREPARATIONS [Interacting]
     Indication: PRODUCT USED FOR UNKNOWN INDICATION

REACTIONS (2)
  - DRUG INTERACTION [None]
  - POST PROCEDURAL HAEMORRHAGE [None]
